FAERS Safety Report 10855114 (Version 1)
Quarter: 2015Q1

REPORT INFORMATION
  Report Type: Report from Study
  Country: JP (occurrence: None)
  Receive Date: 20150218
  Receipt Date: 20150218
  Transmission Date: 20150721
  Serious: Yes (Hospitalization)
  Sender: FDA-Public Use
  Company Number: 2001001001-FJ

PATIENT
  Age: 56 Year
  Sex: Male

DRUGS (8)
  1. BREDININ (MIZORIBINE) [Concomitant]
     Active Substance: MIZORIBINE
  2. BAKTAR (SULFAMETHOXAZOLE, TRIMETHOPRIM) TABLET [Concomitant]
     Active Substance: SULFAMETHOXAZOLE\TRIMETHOPRIM
  3. PROGRAF [Suspect]
     Active Substance: TACROLIMUS\TACROLIMUS ANHYDROUS
     Indication: RENAL TRANSPLANT
     Route: 048
     Dates: start: 20000206, end: 20000207
  4. FRANDOL S (ISOSORBIDE DINITRATE) [Concomitant]
  5. HUMULIN R (INSULIN HUMAN) [Concomitant]
  6. PREDONINE [Suspect]
     Active Substance: PREDNISOLONE\PREDNISOLONE ACETATE\PREDNISOLONE SODIUM SUCCINATE
     Indication: RENAL TRANSPLANT
     Route: 048
     Dates: start: 20000208
  7. PROGRAF [Suspect]
     Active Substance: TACROLIMUS\TACROLIMUS ANHYDROUS
     Indication: RENAL TRANSPLANT
     Route: 041
     Dates: start: 20000208, end: 20000208
  8. ADALAT L (NIFEDIPINE) [Concomitant]

REACTIONS (1)
  - Pneumatosis intestinalis [None]

NARRATIVE: CASE EVENT DATE: 20000823
